FAERS Safety Report 15809270 (Version 2)
Quarter: 2019Q4

REPORT INFORMATION
  Report Type: Report from Study
  Country: None (occurrence: TN)
  Receive Date: 20190110
  Receipt Date: 20191021
  Transmission Date: 20200122
  Serious: Yes (Hospitalization, Other)
  Sender: FDA-Public Use
  Company Number: TN-ABBVIE-19K-160-2618149-00

PATIENT
  Sex: Female

DRUGS (4)
  1. IMUREL [Concomitant]
     Active Substance: AZATHIOPRINE SODIUM
     Indication: PRODUCT USED FOR UNKNOWN INDICATION
     Dates: end: 2018
  2. HUMIRA [Suspect]
     Active Substance: ADALIMUMAB
     Route: 058
     Dates: start: 20180618, end: 2018
  3. HUMIRA [Suspect]
     Active Substance: ADALIMUMAB
     Dosage: 80 MG LOADING DOSE
     Route: 058
     Dates: start: 20180604, end: 20180604
  4. HUMIRA [Suspect]
     Active Substance: ADALIMUMAB
     Indication: CROHN^S DISEASE
     Dosage: 160 MG LOADING DOSE
     Route: 058
     Dates: start: 20180521, end: 20180521

REACTIONS (3)
  - Synovial cyst [Unknown]
  - Swelling [Recovering/Resolving]
  - Tuberculosis [Recovering/Resolving]

NARRATIVE: CASE EVENT DATE: 2018
